FAERS Safety Report 24081491 (Version 1)
Quarter: 2024Q3

REPORT INFORMATION
  Report Type: Spontaneous
  Country: US (occurrence: US)
  Receive Date: 20240712
  Receipt Date: 20240712
  Transmission Date: 20241016
  Serious: No
  Sender: SANDOZ
  Company Number: US-002147023-NVSC2023US260208

PATIENT
  Sex: Female

DRUGS (2)
  1. ONASEMNOGENE ABEPARVOVEC [Suspect]
     Active Substance: ONASEMNOGENE ABEPARVOVEC
     Indication: Spinal muscular atrophy
     Dosage: UNK
     Route: 065
     Dates: start: 20200520
  2. PREDNISOLONE [Suspect]
     Active Substance: PREDNISOLONE
     Indication: Spinal muscular atrophy
     Dosage: 2.5 DF 2.5 ML
     Route: 065
     Dates: start: 20200513, end: 20201001

REACTIONS (11)
  - Pyrexia [Recovered/Resolved]
  - Skin infection [Recovered/Resolved]
  - Medical device site cellulitis [Recovered/Resolved]
  - Vomiting [Recovered/Resolved]
  - Diarrhoea [Recovered/Resolved]
  - Diarrhoea [Recovered/Resolved]
  - Vomiting [Recovered/Resolved]
  - Pyrexia [Recovered/Resolved]
  - Vomiting [Recovered/Resolved]
  - Scoliosis [Not Recovered/Not Resolved]
  - Viral infection [Recovered/Resolved]

NARRATIVE: CASE EVENT DATE: 20210408
